FAERS Safety Report 7169982-1 (Version None)
Quarter: 2010Q4

REPORT INFORMATION
  Report Type: 
  Country: None (occurrence: None)
  Receive Date: 20101206
  Receipt Date: 20101130
  Transmission Date: 20110411
  Serious: Yes (Hospitalization)
  Sender: FDA-Public Use
  Company Number: OMPQ-NO-1012S-1034

PATIENT
  Age: 40 Year
  Sex: Male

DRUGS (1)
  1. OMNIPAQUE 140 [Suspect]
     Indication: VERTIGO
     Dosage: 30 ML, SINGLE DOSE, I.V.
     Route: 042
     Dates: start: 20101119, end: 20101119

REACTIONS (6)
  - ABNORMAL BEHAVIOUR [None]
  - CONTRAST MEDIA REACTION [None]
  - LIP OEDEMA [None]
  - MOVEMENT DISORDER [None]
  - MUSCLE SWELLING [None]
  - PERIORBITAL OEDEMA [None]
